FAERS Safety Report 19350661 (Version 1)
Quarter: 2021Q2

REPORT INFORMATION
  Report Type: Spontaneous
  Country: US (occurrence: US)
  Receive Date: 20210531
  Receipt Date: 20210531
  Transmission Date: 20210717
  Serious: Yes (Hospitalization, Other)
  Sender: FDA-Public Use
  Company Number: US-STRIDES ARCOLAB LIMITED-2021SP000620

PATIENT
  Age: 65 Year
  Sex: Female

DRUGS (3)
  1. TOBRAMYCIN. [Suspect]
     Active Substance: TOBRAMYCIN
     Indication: LOCALISED INFECTION
     Dosage: 15 GRAM, ONE TOTAL
     Route: 065
  2. LEVOPHED [Concomitant]
     Active Substance: NOREPINEPHRINE BITARTRATE
     Indication: HYPOTENSION
     Dosage: UNK
     Route: 065
  3. VANCOMYCIN [Suspect]
     Active Substance: VANCOMYCIN
     Indication: LOCALISED INFECTION
     Dosage: 12 GRAM, ONE TOTAL
     Route: 065

REACTIONS (4)
  - Necrosis ischaemic [Recovered/Resolved]
  - Drug level increased [Recovered/Resolved]
  - Renal failure [Recovered/Resolved]
  - Renal tubular necrosis [Recovered/Resolved]
